FAERS Safety Report 6397792-1 (Version None)
Quarter: 2009Q4

REPORT INFORMATION
  Report Type: 
  Country: None (occurrence: None)
  Receive Date: 20091007
  Receipt Date: 20090924
  Transmission Date: 20100525
  Serious: Yes (Death, Hospitalization, Other)
  Sender: FDA-Public Use
  Company Number: 2009AP003786

PATIENT
  Age: 43 Year
  Sex: Female
  Weight: 79.3795 kg

DRUGS (2)
  1. ALPRAZOLAM [Suspect]
     Dosage: 10 MG; 60 MG
  2. ZOLPIDEM TARTRATE [Suspect]
     Indication: INSOMNIA

REACTIONS (20)
  - ABNORMAL BEHAVIOUR [None]
  - AUTONOMIC NERVOUS SYSTEM IMBALANCE [None]
  - BLOOD PRESSURE INCREASED [None]
  - BODY TEMPERATURE INCREASED [None]
  - CONVERSION DISORDER [None]
  - CONVULSION [None]
  - CYANOSIS [None]
  - DISORIENTATION [None]
  - DRUG ABUSE [None]
  - DRUG WITHDRAWAL SYNDROME [None]
  - HALLUCINATIONS, MIXED [None]
  - MENTAL STATUS CHANGES [None]
  - MYOCLONUS [None]
  - OBESITY [None]
  - OVERDOSE [None]
  - POSTURE ABNORMAL [None]
  - RESPIRATION ABNORMAL [None]
  - SYMPTOM MASKED [None]
  - TACHYCARDIA [None]
  - TREMOR [None]
